FAERS Safety Report 4938319-8 (Version None)
Quarter: 2006Q1

REPORT INFORMATION
  Report Type: 
  Country: None (occurrence: None)
  Receive Date: 20060309
  Receipt Date: 20060227
  Transmission Date: 20060701
  Serious: Yes (Hospitalization)
  Sender: FDA-Public Use
  Company Number: NO-GLAXOSMITHKLINE-B0414579A

PATIENT
  Age: 44 Year
  Sex: Male

DRUGS (8)
  1. SEROXAT [Suspect]
     Indication: TINNITUS
     Dosage: 20MG PER DAY
     Route: 065
     Dates: start: 19960101, end: 19980106
  2. SOBRIL [Concomitant]
  3. VIVAL [Concomitant]
  4. PARALGIN FORTE [Concomitant]
  5. ROHYPNOL [Concomitant]
  6. ATARAX [Concomitant]
  7. ESUCOS [Concomitant]
  8. LARGACTIL [Concomitant]

REACTIONS (19)
  - ALCOHOL USE [None]
  - CHOLECYSTECTOMY [None]
  - CONSTIPATION [None]
  - DEPRESSED LEVEL OF CONSCIOUSNESS [None]
  - DIABETES MELLITUS INSULIN-DEPENDENT [None]
  - EXTREMITY NECROSIS [None]
  - GASTROINTESTINAL PAIN [None]
  - GENERAL PHYSICAL HEALTH DETERIORATION [None]
  - INTENTIONAL SELF-INJURY [None]
  - LACERATION [None]
  - MALABSORPTION [None]
  - MANIA [None]
  - MENTAL DISORDER [None]
  - NERVE INJURY [None]
  - OVERDOSE [None]
  - PANCREATITIS [None]
  - PERIPHERAL ISCHAEMIA [None]
  - SUICIDE ATTEMPT [None]
  - WEIGHT INCREASED [None]
